FAERS Safety Report 25603404 (Version 2)
Quarter: 2025Q4

REPORT INFORMATION
  Report Type: Spontaneous
  Country: US (occurrence: US)
  Receive Date: 20250724
  Receipt Date: 20251002
  Transmission Date: 20260117
  Serious: Yes (Other)
  Sender: ELI LILLY AND COMPANY
  Company Number: US-ELI_LILLY_AND_COMPANY-US202507019071

PATIENT
  Age: 57 Year

DRUGS (1)
  1. EBGLYSS [Suspect]
     Active Substance: LEBRIKIZUMAB-LBKZ
     Indication: Product used for unknown indication
     Dosage: 250 MG, MONTHLY (1/M)
     Route: 065

REACTIONS (4)
  - Brain injury [Unknown]
  - Hip fracture [Unknown]
  - General physical condition abnormal [Unknown]
  - Mental disorder [Unknown]
